FAERS Safety Report 8618951 (Version 2)
Quarter: 2012Q4

REPORT INFORMATION
  Report Type: 
  Country: US (occurrence: US)
  Receive Date: 20120618
  Receipt Date: 20121112
  Transmission Date: 20130627
  Serious: Yes (Hospitalization, Other)
  Sender: FDA-Public Use
  Company Number: US-BAYER-2012-058510

PATIENT
  Age: 14 Year
  Sex: Female
  Weight: 55.78 kg

DRUGS (11)
  1. YAZ [Suspect]
     Indication: ACNE
     Dosage: UNK
     Dates: start: 20090707, end: 20091221
  2. ACCUTANE [Concomitant]
     Indication: ACNE
  3. ZANTAC [Concomitant]
     Dosage: UNK
     Dates: start: 2009, end: 2010
  4. BENADRYL [Concomitant]
     Dosage: UNK
     Dates: start: 2008, end: 2009
  5. FLUTICASONE [Concomitant]
     Dosage: 50 ?g, UNK
     Dates: start: 20100122
  6. ACIPHEX [Concomitant]
     Dosage: 20 mg, UNK
     Dates: start: 20091224, end: 20100125
  7. ADVAIR DISKUS [Concomitant]
     Dosage: 100/50 MIS
     Dates: start: 20080603, end: 20100216
  8. ADVAIR DISKUS [Concomitant]
     Dosage: UNK
     Dates: start: 2000
  9. CLARAVIS [Concomitant]
     Dosage: 40 mg, UNK
     Dates: start: 20090822, end: 20100222
  10. TETRACYCLINE [Concomitant]
     Dosage: 250 mg, UNK
     Dates: start: 20090723
  11. ORTHO TRI CYCLEN [Concomitant]

REACTIONS (19)
  - Cholelithiasis [None]
  - Nervous system disorder [None]
  - Abdominal pain upper [None]
  - Ovarian cyst ruptured [None]
  - Biliary colic [None]
  - Injury [None]
  - Intention tremor [None]
  - Visual impairment [None]
  - Pain [None]
  - General physical health deterioration [None]
  - Anxiety [None]
  - Anhedonia [None]
  - Fear [None]
  - Pain [None]
  - Discomfort [None]
  - Tremor [None]
  - Muscular weakness [None]
  - Migraine [None]
  - Alopecia [None]
